FAERS Safety Report 6639726-8 (Version None)
Quarter: 2010Q1

REPORT INFORMATION
  Report Type: 
  Country: None (occurrence: None)
  Receive Date: 20100318
  Receipt Date: 20100305
  Transmission Date: 20100710
  Serious: Yes (Other)
  Sender: FDA-Public Use
  Company Number: PHHY2009FI34874

PATIENT
  Sex: Male

DRUGS (6)
  1. LEPONEX [Suspect]
     Indication: SCHIZOPHRENIA
     Dosage: 750 MG/DAY
     Dates: start: 20071204
  2. LEPONEX [Suspect]
     Dosage: 500 MG/DAY
     Dates: start: 20090301, end: 20090501
  3. LEPONEX [Suspect]
     Dosage: 450 MG/DAY
     Dates: start: 20090801
  4. RISPERDAL [Concomitant]
     Dosage: UNK
     Dates: start: 20080101
  5. OPAMOX [Concomitant]
  6. IMOVANE [Concomitant]

REACTIONS (25)
  - AMNESIA [None]
  - BLOOD GLUCOSE INCREASED [None]
  - BONE PAIN [None]
  - CHOKING [None]
  - DEAFNESS [None]
  - DIZZINESS [None]
  - DYSPNOEA [None]
  - EAR HAEMORRHAGE [None]
  - EAR INFECTION [None]
  - EAR PRURITUS [None]
  - EOSINOPHIL COUNT INCREASED [None]
  - FATIGUE [None]
  - HYDROPHOBIA [None]
  - INCREASED BRONCHIAL SECRETION [None]
  - INFLUENZA LIKE ILLNESS [None]
  - MALAISE [None]
  - MONOCYTE COUNT INCREASED [None]
  - MUSCLE SPASMS [None]
  - NASOPHARYNGITIS [None]
  - NEUTROPHIL COUNT INCREASED [None]
  - OROPHARYNGEAL PAIN [None]
  - PHOTOPHOBIA [None]
  - SALIVARY HYPERSECRETION [None]
  - TOOTHACHE [None]
  - WHITE BLOOD CELL COUNT INCREASED [None]
